FAERS Safety Report 7641580-2 (Version None)
Quarter: 2011Q3

REPORT INFORMATION
  Report Type: 
  Country: None (occurrence: None)
  Receive Date: 20110727
  Receipt Date: 20110727
  Transmission Date: 20111222
  Serious: Yes (Other)
  Sender: FDA-Public Use
  Company Number: None

PATIENT
  Age: 62 Year
  Sex: Male
  Weight: 72.7 kg

DRUGS (1)
  1. TAMSULOSIN HCL [Suspect]
     Indication: PROSTATOMEGALY
     Dosage: 0.4MG ONE/DAY ORAL 047
     Route: 048
     Dates: start: 20110101, end: 20110315

REACTIONS (1)
  - ALOPECIA [None]
